FAERS Safety Report 15859692 (Version 1)
Quarter: 2019Q1

REPORT INFORMATION
  Report Type: Spontaneous
  Country: GB (occurrence: GB)
  Receive Date: 20190123
  Receipt Date: 20190123
  Transmission Date: 20190417
  Serious: Yes (Other)
  Sender: FDA-Public Use
  Company Number: GB-BAYER-2018-026245

PATIENT
  Age: 29 Year
  Sex: Female

DRUGS (1)
  1. JAYDESS [Suspect]
     Active Substance: LEVONORGESTREL
     Indication: CONTRACEPTION
     Dosage: 14 MCG/24HR, CONT
     Route: 015
     Dates: start: 20171101, end: 20180205

REACTIONS (4)
  - Pregnancy with contraceptive device [None]
  - Retained products of conception [None]
  - Abortion spontaneous [None]
  - Drug ineffective [None]

NARRATIVE: CASE EVENT DATE: 2018
